FAERS Safety Report 8883320 (Version 2)
Quarter: 2012Q4

REPORT INFORMATION
  Report Type: 
  Country: AU (occurrence: AU)
  Receive Date: 20121102
  Receipt Date: 20121129
  Transmission Date: 20130627
  Serious: Yes (Death, Other)
  Sender: FDA-Public Use
  Company Number: AU-B.I. PHARMACEUTICALS,INC./RIDGEFIELD-2012-AU-01823AU

PATIENT
  Age: 80 Year
  Sex: Male
  Weight: 101 kg

DRUGS (8)
  1. PRADAXA [Suspect]
     Indication: ATRIAL FIBRILLATION
     Dosage: 300 mg
  2. ARATAC [Concomitant]
     Dosage: 200 mg
  3. AVAPRO [Concomitant]
     Dosage: 300/12.5
  4. SPIRIVA [Concomitant]
     Dosage: 18 mcg
  5. OXIS TURBUHALER [Concomitant]
     Route: 055
  6. OSTELIN [Concomitant]
     Dosage: 25 mcg
     Dates: start: 2008
  7. FRUSEMIDE [Concomitant]
     Dosage: 40 mg
  8. ESOPMEPRAZOLE [Concomitant]
     Dosage: 20 mg

REACTIONS (3)
  - Myocardial infarction [Fatal]
  - Angina pectoris [Unknown]
  - Syncope [Unknown]
